FAERS Safety Report 6469433-6 (Version None)
Quarter: 2009Q4

REPORT INFORMATION
  Report Type: 
  Country: None (occurrence: None)
  Receive Date: 20091203
  Receipt Date: 20091120
  Transmission Date: 20100525
  Serious: Yes (Hospitalization)
  Sender: FDA-Public Use
  Company Number: DE-CELGENEUS-062-21880-09062210

PATIENT
  Sex: Female
  Weight: 66 kg

DRUGS (4)
  1. REVLIMID [Suspect]
     Indication: MULTIPLE MYELOMA
     Route: 048
     Dates: start: 20081120
  2. DEXAMETHASONE TAB [Concomitant]
     Indication: MULTIPLE MYELOMA
     Route: 048
     Dates: start: 20081120
  3. OMEPRAZOLE [Concomitant]
     Indication: DRUG USE FOR UNKNOWN INDICATION
     Route: 065
     Dates: start: 20081120
  4. ENOXAPARIN SODIUM [Concomitant]
     Indication: DRUG USE FOR UNKNOWN INDICATION
     Route: 065
     Dates: start: 20081120

REACTIONS (3)
  - FALL [None]
  - SKIN LACERATION [None]
  - SYNCOPE [None]
